FAERS Safety Report 9118339 (Version 1)
Quarter: 2013Q1

REPORT INFORMATION
  Report Type: Spontaneous
  Country: US (occurrence: None)
  Receive Date: 20130221
  Receipt Date: 20130221
  Transmission Date: 20140127
  Serious: Yes (Other)
  Sender: FDA-Public Use
  Company Number: None

PATIENT
  Sex: Male

DRUGS (6)
  1. REVLIMID [Suspect]
     Indication: PLASMA CELL MYELOMA
     Dosage: 25MG QDAY X 23D OFF 7D ORALLY
     Route: 048
     Dates: start: 20130125, end: 20130126
  2. ATENOLOL [Concomitant]
  3. ISONIAZID [Concomitant]
  4. ACYCLOVIR [Concomitant]
  5. DEXAMETHASONE [Concomitant]
  6. ONDANSETRON [Concomitant]

REACTIONS (1)
  - Swelling face [None]
